FAERS Safety Report 5440653-2 (Version None)
Quarter: 2007Q3

REPORT INFORMATION
  Report Type: 
  Country: None (occurrence: None)
  Receive Date: 20070831
  Receipt Date: 20070814
  Transmission Date: 20080115
  Serious: No
  Sender: FDA-Public Use
  Company Number: US-BOEHRINGER INGELHEIM PHARMACEUTICALS, INC.-2007-BP-19229BP

PATIENT
  Age: 60 Year
  Sex: Female

DRUGS (2)
  1. AGGRENOX [Suspect]
     Indication: TRANSIENT ISCHAEMIC ATTACK
     Route: 048
  2. BYETTA [Concomitant]
     Indication: DIABETES MELLITUS

REACTIONS (2)
  - CAPILLARY DISORDER [None]
  - GINGIVAL BLEEDING [None]
